FAERS Safety Report 10441714 (Version 1)
Quarter: 2014Q3

REPORT INFORMATION
  Report Type: Spontaneous
  Country: US (occurrence: US)
  Receive Date: 20140909
  Receipt Date: 20140909
  Transmission Date: 20150326
  Serious: Yes (Other)
  Sender: FDA-Public Use
  Company Number: US-PFIZER INC-2014248736

PATIENT

DRUGS (1)
  1. CHANTIX [Suspect]
     Active Substance: VARENICLINE TARTRATE
     Dosage: UNK

REACTIONS (11)
  - Chest discomfort [Unknown]
  - Abnormal dreams [Unknown]
  - Dysstasia [Unknown]
  - Dyspnoea [Unknown]
  - Decreased appetite [Unknown]
  - Nausea [Unknown]
  - Mood swings [Unknown]
  - Insomnia [Unknown]
  - Depression [Unknown]
  - Motion sickness [Unknown]
  - Palpitations [Unknown]
